FAERS Safety Report 24564250 (Version 1)
Quarter: 2024Q4

REPORT INFORMATION
  Report Type: Spontaneous
  Country: JP (occurrence: JP)
  Receive Date: 20241030
  Receipt Date: 20241030
  Transmission Date: 20250115
  Serious: Yes (Hospitalization)
  Sender: MYLAN
  Company Number: JP-MYLANLABS-2024M1097659

PATIENT
  Age: 31 Year
  Sex: Male

DRUGS (5)
  1. TACROLIMUS [Suspect]
     Active Substance: TACROLIMUS
     Indication: Prophylaxis against graft versus host disease
     Dosage: UNK
     Route: 065
  2. MYCOPHENOLATE MOFETIL [Suspect]
     Active Substance: MYCOPHENOLATE MOFETIL
     Indication: Prophylaxis against graft versus host disease
     Dosage: UNK
     Route: 065
  3. GANCICLOVIR [Suspect]
     Active Substance: GANCICLOVIR
     Indication: Adenoviral haemorrhagic cystitis
     Dosage: 500 MILLIGRAM, QD
     Route: 042
  4. VIDARABINE [Concomitant]
     Active Substance: VIDARABINE
     Indication: Adenoviral conjunctivitis
     Dosage: 500 MILLIGRAM, QD
     Route: 042
  5. RIBAVIRIN [Concomitant]
     Active Substance: RIBAVIRIN
     Indication: Adenoviral haemorrhagic cystitis
     Dosage: 1200 MILLIGRAM, QD
     Route: 048

REACTIONS (1)
  - Drug ineffective [Unknown]
